FAERS Safety Report 5869803-0 (Version None)
Quarter: 2008Q3

REPORT INFORMATION
  Report Type: 
  Country: None (occurrence: None)
  Receive Date: 20080904
  Receipt Date: 20080825
  Transmission Date: 20090109
  Serious: Yes (Other)
  Sender: FDA-Public Use
  Company Number: FR-AMGEN-US305211

PATIENT
  Sex: Female

DRUGS (1)
  1. ENBREL [Suspect]
     Indication: ANKYLOSING SPONDYLITIS
     Route: 058
     Dates: start: 20060101, end: 20070601

REACTIONS (5)
  - BUTTERFLY RASH [None]
  - CYANOSIS [None]
  - DNA ANTIBODY POSITIVE [None]
  - ERYTHROSIS [None]
  - PHOTOSENSITIVITY REACTION [None]
